FAERS Safety Report 19218473 (Version 1)
Quarter: 2021Q2

REPORT INFORMATION
  Report Type: Report from Study
  Country: FR (occurrence: FR)
  Receive Date: 20210505
  Receipt Date: 20210505
  Transmission Date: 20210717
  Serious: Yes (Hospitalization)
  Sender: FDA-Public Use
  Company Number: FR-ASTRAZENECA-2021A372279

PATIENT
  Age: 31510 Day
  Sex: Female

DRUGS (1)
  1. BLINDED OLAPARIB [Suspect]
     Active Substance: OLAPARIB
     Indication: ENDOMETRIAL CANCER
     Dosage: 400 MG
     Route: 048
     Dates: start: 20190719, end: 20200828

REACTIONS (1)
  - COVID-19 [Not Recovered/Not Resolved]

NARRATIVE: CASE EVENT DATE: 20200907
